FAERS Safety Report 5229739-5 (Version None)
Quarter: 2007Q1

REPORT INFORMATION
  Report Type: 
  Country: None (occurrence: None)
  Receive Date: 20070201
  Receipt Date: 20070118
  Transmission Date: 20070707
  Serious: Yes (Disabling)
  Sender: FDA-Public Use
  Company Number: 235674

PATIENT
  Age: 77 Year
  Sex: Male
  Weight: 71 kg

DRUGS (3)
  1. AVASTIN [Suspect]
     Indication: COLORECTAL CANCER METASTATIC
     Dosage: 5 MG/KG INTRAVENOUS
     Route: 042
     Dates: start: 20061012
  2. CAMPTOSAR [Concomitant]
  3. FLUOROURACIL [Concomitant]

REACTIONS (1)
  - MEMORY IMPAIRMENT [None]
